FAERS Safety Report 9568726 (Version 1)
Quarter: 2013Q3

REPORT INFORMATION
  Report Type: Spontaneous
  Country: US (occurrence: US)
  Receive Date: 20130930
  Receipt Date: 20130930
  Transmission Date: 20140515
  Serious: No
  Sender: FDA-Public Use
  Company Number: US-AMGEN-USASP2013062196

PATIENT
  Age: 47 Year
  Sex: Female

DRUGS (11)
  1. ENBREL [Suspect]
     Indication: PRODUCT USED FOR UNKNOWN INDICATION
     Dosage: 50 MG, QWK
     Route: 058
  2. MAXALT [Concomitant]
     Dosage: 10 MG, UNK
  3. DICLOFENAC [Concomitant]
     Dosage: 25 MG, UNK (DR)
  4. METHOTREXATE [Concomitant]
     Dosage: 2.5 MG, UNK
  5. LISINOPRIL HCTZ [Concomitant]
     Dosage: UNK (10-12.5)
  6. LEUCOVORIN CA [Concomitant]
     Dosage: 5 MG, UNK
  7. PLAQUENIL                          /00072602/ [Concomitant]
     Dosage: 200 MG, UNK
  8. PREDNISONE [Concomitant]
     Dosage: 1 MG, UNK
  9. CLARITINE [Concomitant]
     Dosage: 10 MG, UNK
  10. PRILOSEC                           /00661201/ [Concomitant]
     Dosage: 10 MG, UNK
  11. MICROGESTIN [Concomitant]
     Dosage: UNK (1/20)

REACTIONS (1)
  - Therapeutic response decreased [Unknown]
